FAERS Safety Report 20679596 (Version 8)
Quarter: 2023Q1

REPORT INFORMATION
  Report Type: Report from Study
  Country: US (occurrence: US)
  Receive Date: 20220406
  Receipt Date: 20230316
  Transmission Date: 20230417
  Serious: No
  Sender: FDA-Public Use
  Company Number: US-NOVARTISTESTPH-NVSC2022US076927

PATIENT
  Sex: Female

DRUGS (4)
  1. KESIMPTA [Suspect]
     Active Substance: OFATUMUMAB
     Indication: Relapsing multiple sclerosis
     Dosage: (LOADING DOSE) QMO
     Route: 058
     Dates: start: 20220319
  2. VITAMIN D [Suspect]
     Active Substance: VITAMIN D NOS
     Indication: Product used for unknown indication
     Dosage: UNK
     Route: 065
  3. FISH OIL [Suspect]
     Active Substance: FISH OIL
     Indication: Product used for unknown indication
     Dosage: UNK
     Route: 065
  4. VITAMIN E [Suspect]
     Active Substance: .ALPHA.-TOCOPHEROL
     Indication: Product used for unknown indication
     Dosage: UNK
     Route: 065

REACTIONS (4)
  - Headache [Unknown]
  - Abdominal pain [Not Recovered/Not Resolved]
  - Product supply issue [Recovered/Resolved]
  - Vertigo [Unknown]
